FAERS Safety Report 9456514 (Version 1)
Quarter: 2013Q3

REPORT INFORMATION
  Report Type: Spontaneous
  Country: GB (occurrence: None)
  Receive Date: 20130809
  Receipt Date: 20130809
  Transmission Date: 20140515
  Serious: Yes (Other)
  Sender: FDA-Public Use
  Company Number: GER/UKI/13/0033796

PATIENT
  Age: 77 Year
  Sex: Male
  Weight: 87 kg

DRUGS (9)
  1. ATORVASTATIN (ATORVASTATIN) [Suspect]
     Indication: PRODUCT USED FOR UNKNOWN INDICATION
     Dates: start: 20130628
  2. ANGEZE/MOMOMAX SR (ISOSORBIDE MONONITRATE) [Concomitant]
  3. ASPIRIN (ACETYLSALICYLICA ACID) [Concomitant]
  4. BRINZOLAMIDE (BRINZOLAMIDE) [Concomitant]
  5. FELODIPINE (FELOPDIPINE) [Concomitant]
  6. FLUTICASONE (FLUTICASONE) [Concomitant]
  7. ISOSORBIDE MONONITRATE (ISOSORBIDE MONONITRATE) [Concomitant]
  8. TIMOLOL (TIMOLOL) (NONE) [Concomitant]
  9. VENTOLIN (SALBUTAMOL) [Concomitant]

REACTIONS (4)
  - Joint swelling [None]
  - Myalgia [None]
  - Headache [None]
  - Malaise [None]
